FAERS Safety Report 9562090 (Version 2)
Quarter: 2013Q4

REPORT INFORMATION
  Report Type: Spontaneous
  Country: IT (occurrence: IT)
  Receive Date: 20130927
  Receipt Date: 20131126
  Transmission Date: 20140711
  Serious: Yes (Hospitalization)
  Sender: FDA-Public Use
  Company Number: IT-PFIZER INC-2013273259

PATIENT
  Age: 72 Year
  Sex: Female
  Weight: 50 kg

DRUGS (5)
  1. ACICLOVIR [Concomitant]
     Dosage: UNK
  2. VINCRISTINE SULFATE [Suspect]
     Indication: LYMPHOMA
     Dosage: 2 MG/M2, CYCLIC
     Route: 042
     Dates: start: 20130806, end: 20130806
  3. DOXORUBICIN HCL [Suspect]
     Indication: LYMPHOMA
     Dosage: 80 MG/M2, CYCLIC
     Route: 042
     Dates: start: 20130806, end: 20130806
  4. CYCLOPHOSPHAMIDE [Suspect]
     Indication: LYMPHOMA
     Dosage: 1200 MG/KG, CYCLIC
     Route: 042
     Dates: start: 20130806, end: 20130806
  5. RITUXIMAB [Suspect]
     Indication: LYMPHOMA
     Dosage: 600 MG/M2, CYCLIC
     Route: 042
     Dates: start: 20130813, end: 20130813

REACTIONS (3)
  - Renal failure acute [Unknown]
  - Confusional state [Unknown]
  - Mucosal inflammation [Unknown]
